FAERS Safety Report 13716944 (Version 1)
Quarter: 2017Q3

REPORT INFORMATION
  Report Type: Spontaneous
  Country: US (occurrence: US)
  Receive Date: 20170703
  Receipt Date: 20170703
  Transmission Date: 20171127
  Serious: Yes (Other)
  Sender: FDA-Public Use
  Company Number: None

PATIENT
  Age: 71 Year
  Sex: Female
  Weight: 69.75 kg

DRUGS (22)
  1. ELIQUIS [Concomitant]
     Active Substance: APIXABAN
  2. ELIDEL [Concomitant]
     Active Substance: PIMECROLIMUS
  3. MAGNESIUM OXIDE. [Concomitant]
     Active Substance: MAGNESIUM OXIDE
  4. FISH OIL [Concomitant]
     Active Substance: FISH OIL
  5. INSITOL POWDER [Concomitant]
  6. COQ10 [Concomitant]
     Active Substance: UBIDECARENONE
  7. DREVA PLUS DIGESTIVE ENZYMES [Concomitant]
  8. SOOTHE EYES DROPS AND PM ONIMENT [Concomitant]
  9. XIIDRA [Suspect]
     Active Substance: LIFITEGRAST
     Indication: DRY EYE
     Dosage: ?          OTHER STRENGTH:MG/ML;QUANTITY:1 DROP(S);?
     Route: 047
     Dates: start: 20170620, end: 20170626
  10. PROBOTIC [Concomitant]
     Active Substance: PROBIOTICS NOS
  11. GENTLE IRON [Concomitant]
  12. THERA EYE DROPS [Concomitant]
  13. POTOSSIUM GLUCONATE [Concomitant]
  14. VITAMIN D3 [Concomitant]
     Active Substance: CHOLECALCIFEROL
  15. BONE SUPPORT [Concomitant]
  16. MIRA LAX POWDER [Concomitant]
  17. VITAMIN B COMPLEX [Concomitant]
     Active Substance: CYANOCOBALAMIN\DEXPANTHENOL\NIACINAMIDE\PYRIDOXINE HYDROCHLORIDE\RIBOFLAVIN 5^-PHOSPHATE SODIUM\THIAMINE HYDROCHLORIDE\VITAMIN B COMPLEX
  18. MULTI VIT [Concomitant]
  19. SIMVASTATIN. [Concomitant]
     Active Substance: SIMVASTATIN
  20. FLAXSEED [Concomitant]
     Active Substance: FLAX SEED
  21. SIMILASAN COMPLETE EYE RELEIF [Concomitant]
  22. CITALOPRAM HYDROBROMIDE. [Concomitant]
     Active Substance: CITALOPRAM HYDROBROMIDE

REACTIONS (6)
  - Eye pruritus [None]
  - Dry eye [None]
  - Pruritus [None]
  - Eye irritation [None]
  - Hypersensitivity [None]
  - Photosensitivity reaction [None]

NARRATIVE: CASE EVENT DATE: 20170626
